FAERS Safety Report 20585971 (Version 2)
Quarter: 2022Q2

REPORT INFORMATION
  Report Type: Spontaneous
  Country: US (occurrence: US)
  Receive Date: 20220312
  Receipt Date: 20220506
  Transmission Date: 20220721
  Serious: No
  Sender: FDA-Public Use
  Company Number: US-BRISTOL-MYERS SQUIBB COMPANY-BMS-2022-037982

PATIENT
  Age: 60 Year
  Sex: Female

DRUGS (1)
  1. ORENCIA [Suspect]
     Active Substance: ABATACEPT
     Indication: Rheumatoid arthritis
     Dosage: BATCH NUMBER: ACA7393, EXPIRATION DATE: 31-AUG-2023
     Route: 058
     Dates: start: 202202

REACTIONS (3)
  - Drug ineffective [Unknown]
  - Skin reaction [Unknown]
  - Nausea [Unknown]
